FAERS Safety Report 6763336-5 (Version None)
Quarter: 2010Q2

REPORT INFORMATION
  Report Type: 
  Country: None (occurrence: None)
  Receive Date: 20100610
  Receipt Date: 20100420
  Transmission Date: 20101027
  Serious: Yes (Hospitalization, Other)
  Sender: FDA-Public Use
  Company Number: US-BAYER-200938979NA

PATIENT
  Age: 31 Year
  Sex: Female
  Weight: 136 kg

DRUGS (8)
  1. YAZ [Suspect]
     Indication: DRUG USE FOR UNKNOWN INDICATION
     Route: 048
     Dates: start: 20081101, end: 20090126
  2. YASMIN [Suspect]
     Indication: PREMENSTRUAL SYNDROME
     Route: 048
     Dates: start: 20081101, end: 20090101
  3. OCELLA [Suspect]
     Indication: PREMENSTRUAL SYNDROME
     Route: 048
     Dates: start: 20081101, end: 20090101
  4. ANTIBIOTICS [Concomitant]
  5. ASTHMA MEDICATIONS NOS [Concomitant]
  6. IBUPROFEN [Concomitant]
     Dosage: 2 TO 3 TIMES PER MONTH
  7. CITALOPRAM [Concomitant]
     Dates: start: 20090101
  8. ANTIDEPRESSANT [Concomitant]

REACTIONS (1)
  - DEEP VEIN THROMBOSIS [None]
